FAERS Safety Report 7245265-6 (Version None)
Quarter: 2011Q1

REPORT INFORMATION
  Report Type: 
  Country: None (occurrence: None)
  Receive Date: 20110126
  Receipt Date: 20110117
  Transmission Date: 20110831
  Serious: Yes (Hospitalization, Other)
  Sender: FDA-Public Use
  Company Number: US-ASTRAZENECA-2011SE03107

PATIENT
  Sex: Male

DRUGS (1)
  1. CRESTOR [Suspect]
     Route: 048

REACTIONS (4)
  - ARTERIAL STENT INSERTION [None]
  - ARTERIOSCLEROSIS [None]
  - MYOCARDIAL INFARCTION [None]
  - EJECTION FRACTION DECREASED [None]
